FAERS Safety Report 19769298 (Version 1)
Quarter: 2021Q3

REPORT INFORMATION
  Report Type: Spontaneous
  Country: US (occurrence: US)
  Receive Date: 20210831
  Receipt Date: 20210831
  Transmission Date: 20211014
  Serious: No
  Sender: FDA-Public Use
  Company Number: US-SA-2021SA286196

PATIENT
  Sex: Male

DRUGS (7)
  1. GUANFACINE HCL [Concomitant]
     Active Substance: GUANFACINE HYDROCHLORIDE
  2. DUPIXENT [Suspect]
     Active Substance: DUPILUMAB
     Indication: DERMATITIS ATOPIC
     Dosage: 200 MG, 1X
     Route: 058
  3. HYDROCORTISONE. [Concomitant]
     Active Substance: HYDROCORTISONE
  4. FLUOXETINE HCL [Concomitant]
     Active Substance: FLUOXETINE HYDROCHLORIDE
  5. KETOCONAZOLE. [Concomitant]
     Active Substance: KETOCONAZOLE
  6. CETIRIZINE HYDROCHLORIDE. [Concomitant]
     Active Substance: CETIRIZINE HYDROCHLORIDE
  7. MOMETASONE [Concomitant]
     Active Substance: MOMETASONE

REACTIONS (4)
  - Eczema [Unknown]
  - Skin discolouration [Unknown]
  - Product use issue [Unknown]
  - Rash [Unknown]
